FAERS Safety Report 10061904 (Version 1)
Quarter: 2014Q2

REPORT INFORMATION
  Report Type: Spontaneous
  Country: US (occurrence: US)
  Receive Date: 20140407
  Receipt Date: 20140407
  Transmission Date: 20141212
  Serious: Yes (Other)
  Sender: FDA-Public Use
  Company Number: US-SA-2014SA039445

PATIENT
  Sex: 0

DRUGS (2)
  1. LANTUS [Suspect]
     Indication: DIABETES MELLITUS
     Route: 065
  2. APIDRA [Suspect]
     Indication: DIABETES MELLITUS
     Route: 065

REACTIONS (6)
  - Visual impairment [Unknown]
  - Confusional state [Unknown]
  - Mood swings [Unknown]
  - Tinnitus [Unknown]
  - Depressed mood [Unknown]
  - Blood glucose abnormal [Unknown]
